FAERS Safety Report 7103707-0 (Version None)
Quarter: 2010Q4

REPORT INFORMATION
  Report Type: 
  Country: None (occurrence: None)
  Receive Date: 20101115
  Receipt Date: 20080623
  Transmission Date: 20110411
  Serious: No
  Sender: FDA-Public Use
  Company Number: US-KINGPHARMUSA00001-K200800734

PATIENT
  Age: 46 Year
  Sex: Male
  Weight: 72.109 kg

DRUGS (4)
  1. ALTACE [Suspect]
     Indication: CHEST PAIN
     Dosage: 1.25 MG, QD
     Route: 048
     Dates: start: 20080401, end: 20080601
  2. ALTACE [Suspect]
     Dosage: 2.5 MG, QD
     Route: 048
     Dates: start: 20080601
  3. ATORVASTATIN CALCIUM [Suspect]
     Dates: start: 20080401
  4. ASPIRIN [Concomitant]
     Indication: CHEST PAIN
     Dosage: 81 MG, QD
     Route: 048

REACTIONS (1)
  - MYALGIA [None]
